FAERS Safety Report 10890812 (Version 1)
Quarter: 2015Q1

REPORT INFORMATION
  Report Type: Spontaneous
  Country: ES (occurrence: ES)
  Receive Date: 20150305
  Receipt Date: 20150305
  Transmission Date: 20150721
  Serious: Yes (Other)
  Sender: FDA-Public Use
  Company Number: ES-RANBAXY-2015RR-93562

PATIENT
  Age: 9 Year

DRUGS (2)
  1. ACETYLSALICYLIC ACID [Suspect]
     Active Substance: ASPIRIN
     Indication: ALLERGY TEST
     Dosage: UNK
     Route: 048
  2. IBUPROFEN. [Suspect]
     Active Substance: IBUPROFEN
     Indication: ALLERGY TEST
     Dosage: UNK
     Route: 048

REACTIONS (2)
  - Conjunctivitis [Unknown]
  - Angioedema [Unknown]
